FAERS Safety Report 5321787-X (Version None)
Quarter: 2007Q2

REPORT INFORMATION
  Report Type: 
  Country: None (occurrence: None)
  Receive Date: 20070510
  Receipt Date: 20070430
  Transmission Date: 20071010
  Serious: Yes (Other)
  Sender: FDA-Public Use
  Company Number: US-PFIZER INC-2007035563

PATIENT
  Age: 53 Year
  Sex: Female

DRUGS (6)
  1. CHANTIX [Suspect]
     Indication: SMOKING CESSATION THERAPY
     Route: 048
     Dates: start: 20070208, end: 20070301
  2. CLARINEX [Concomitant]
     Route: 048
  3. MONTELUKAST SODIUM [Concomitant]
     Route: 048
  4. PRAVACHOL [Concomitant]
     Route: 048
  5. COMBIVENT [Concomitant]
     Route: 048
  6. ALBUTEROL [Concomitant]
     Route: 048

REACTIONS (2)
  - DERMATITIS BULLOUS [None]
  - ECZEMA [None]
